FAERS Safety Report 21841451 (Version 1)
Quarter: 2023Q1

REPORT INFORMATION
  Report Type: Report from Study
  Country: US (occurrence: US)
  Receive Date: 20230110
  Receipt Date: 20230110
  Transmission Date: 20230418
  Serious: No
  Sender: FDA-Public Use
  Company Number: US-ABBVIE-4229498

PATIENT
  Sex: Female

DRUGS (1)
  1. RINVOQ [Suspect]
     Active Substance: UPADACITINIB
     Indication: Spinal osteoarthritis
     Dosage: STRENGTH: 15 MG
     Route: 048
     Dates: start: 202110

REACTIONS (1)
  - Drug ineffective [Unknown]
